FAERS Safety Report 5654462-2 (Version None)
Quarter: 2008Q1

REPORT INFORMATION
  Report Type: 
  Country: None (occurrence: None)
  Receive Date: 20080305
  Receipt Date: 20080226
  Transmission Date: 20080703
  Serious: Yes (Hospitalization)
  Sender: FDA-Public Use
  Company Number: 2008-00633

PATIENT
  Age: 55 Year
  Sex: Female
  Weight: 111.6 kg

DRUGS (1)
  1. VELCADE [Suspect]
     Indication: HEPATIC NEOPLASM MALIGNANT

REACTIONS (2)
  - INFECTION [None]
  - MENINGITIS [None]
